FAERS Safety Report 6457163-6 (Version None)
Quarter: 2009Q4

REPORT INFORMATION
  Report Type: 
  Country: None (occurrence: None)
  Receive Date: 20091125
  Receipt Date: 20091119
  Transmission Date: 20100525
  Serious: Yes (Hospitalization, Other)
  Sender: FDA-Public Use
  Company Number: BR-ABBOTT-09P-020-0576431-00

PATIENT
  Sex: Female
  Weight: 68 kg

DRUGS (7)
  1. HUMIRA [Suspect]
     Indication: RHEUMATOID ARTHRITIS
     Route: 058
     Dates: start: 20080501, end: 20090601
  2. UNKNOWN TUBERCULOSIS TREATMENT [Suspect]
     Indication: TUBERCULOUS PLEURISY
  3. STREPTOMYCIN [Suspect]
     Indication: TUBERCULOSIS
     Dosage: 1 INJECTION IN ALTERNATIVE DAYS
     Route: 030
     Dates: start: 20090807, end: 20091109
  4. ARAVA [Concomitant]
     Indication: RHEUMATOID ARTHRITIS
     Route: 048
     Dates: start: 20060101
  5. METICORTEN [Concomitant]
     Indication: RHEUMATOID ARTHRITIS
     Route: 048
     Dates: start: 20030101
  6. OMEPRAZOLE [Concomitant]
     Indication: RHEUMATOID ARTHRITIS
     Route: 048
     Dates: start: 20090801
  7. SUPRICAL D [Concomitant]
     Indication: VITAMIN SUPPLEMENTATION
     Route: 048
     Dates: start: 20091101

REACTIONS (27)
  - ALOPECIA [None]
  - ANAEMIA [None]
  - ASTHENIA [None]
  - BALANCE DISORDER [None]
  - BLOOD PRESSURE ABNORMAL [None]
  - CEREBELLAR ISCHAEMIA [None]
  - DECREASED IMMUNE RESPONSIVENESS [None]
  - GAIT DISTURBANCE [None]
  - HEPATIC LESION [None]
  - HEPATITIS [None]
  - HERPES ZOSTER [None]
  - HUNGER [None]
  - HYPERTENSION [None]
  - INTESTINAL ULCER [None]
  - MALAISE [None]
  - MOBILITY DECREASED [None]
  - NECK MASS [None]
  - PULMONARY MASS [None]
  - PYREXIA [None]
  - RENAL MASS [None]
  - SKIN LESION [None]
  - SKIN ODOUR ABNORMAL [None]
  - SKIN ULCER [None]
  - TREMOR [None]
  - TUBERCULOUS PLEURISY [None]
  - VOMITING [None]
  - WOUND [None]
